FAERS Safety Report 8968240 (Version 3)
Quarter: 2013Q1

REPORT INFORMATION
  Report Type: Spontaneous
  Country: US (occurrence: US)
  Receive Date: 20121217
  Receipt Date: 20130114
  Transmission Date: 20140127
  Serious: Yes (Other)
  Sender: FDA-Public Use
  Company Number: CHPA2012US025188

PATIENT
  Age: 80 Year
  Sex: Female

DRUGS (3)
  1. VOLTAREN GEL [Suspect]
     Indication: ARTHRITIS
     Dosage: SQUIRT ON FINGER, TWICE DAILY
     Route: 061
     Dates: start: 2008
  2. DICLOFENAC [Suspect]
  3. ZANTAC [Concomitant]

REACTIONS (5)
  - Arthritis [Recovered/Resolved]
  - Drug administered at inappropriate site [Unknown]
  - Underdose [Unknown]
  - Wrong technique in drug usage process [Unknown]
  - Drug administration error [Unknown]
